FAERS Safety Report 25205479 (Version 2)
Quarter: 2025Q2

REPORT INFORMATION
  Report Type: Spontaneous
  Country: US (occurrence: US)
  Receive Date: 20250417
  Receipt Date: 20250418
  Transmission Date: 20250717
  Serious: Yes (Hospitalization, Other)
  Sender: Kenvue
  Company Number: US-KENVUE-20250403530

PATIENT
  Age: 23 Year
  Sex: Female

DRUGS (1)
  1. ACETAMINOPHEN [Suspect]
     Active Substance: ACETAMINOPHEN
     Indication: Abdominal pain
     Route: 065

REACTIONS (6)
  - Brain oedema [Recovered/Resolved]
  - Exposure during pregnancy [Unknown]
  - Acute hepatic failure [Recovering/Resolving]
  - Blood creatine increased [Unknown]
  - Metabolic function test abnormal [Recovering/Resolving]
  - Overdose [Unknown]
